FAERS Safety Report 6138403-X (Version None)
Quarter: 2009Q1

REPORT INFORMATION
  Report Type: 
  Country: None (occurrence: None)
  Receive Date: 20090327
  Receipt Date: 20090327
  Transmission Date: 20090719
  Serious: Yes (Death, Hospitalization)
  Sender: FDA-Public Use
  Company Number: None

PATIENT
  Sex: Female
  Weight: 11.3 kg

DRUGS (5)
  1. CYCLOPHOSPHAMIDE [Suspect]
     Dosage: 1380 MG
  2. METHOTREXATE [Suspect]
     Dosage: 7.5 MG
  3. RAPAMUNE [Suspect]
     Dosage: 9.3 MG
  4. TACROLIMUS [Suspect]
     Dosage: 2.6 MG
  5. FLUCONAZOLE [Concomitant]

REACTIONS (19)
  - ABDOMINAL DISTENSION [None]
  - ACIDOSIS [None]
  - BLOOD CREATININE INCREASED [None]
  - BLOOD LACTIC ACID INCREASED [None]
  - BRADYCARDIA [None]
  - COAGULOPATHY [None]
  - DIALYSIS [None]
  - FLUID OVERLOAD [None]
  - HYPOTENSION [None]
  - HYPOXIA [None]
  - NO THERAPEUTIC RESPONSE [None]
  - OEDEMA [None]
  - PULMONARY HAEMORRHAGE [None]
  - PYREXIA [None]
  - RESPIRATORY DISORDER [None]
  - RESPIRATORY DISTRESS [None]
  - URINE OUTPUT DECREASED [None]
  - VENOOCCLUSIVE LIVER DISEASE [None]
  - WEIGHT INCREASED [None]
